FAERS Safety Report 7710477-1 (Version None)
Quarter: 2011Q3

REPORT INFORMATION
  Report Type: 
  Country: None (occurrence: None)
  Receive Date: 20110825
  Receipt Date: 20110819
  Transmission Date: 20111222
  Serious: Yes (Other)
  Sender: FDA-Public Use
  Company Number: US-BAYER-2011-076010

PATIENT
  Age: 65 Year
  Sex: Female

DRUGS (6)
  1. AVELOX [Suspect]
     Indication: SINUSITIS
     Dosage: 400 MG, QD
     Dates: start: 20081006
  2. ZYRTEC [Concomitant]
  3. SINGULAIR [Concomitant]
  4. FLONASE [Concomitant]
  5. EXFORGE-HCTZ [Concomitant]
  6. XANAX [Concomitant]

REACTIONS (12)
  - PRURITUS [None]
  - COUGH [None]
  - VOMITING [None]
  - ORAL DISCOMFORT [None]
  - GENERALISED ERYTHEMA [None]
  - DYSPNOEA [None]
  - ORAL HERPES [None]
  - LIP BLISTER [None]
  - MOUTH ULCERATION [None]
  - ERYTHEMA [None]
  - HYPERSENSITIVITY [None]
  - OROPHARYNGEAL PAIN [None]
